FAERS Safety Report 11397749 (Version 3)
Quarter: 2015Q4

REPORT INFORMATION
  Report Type: Spontaneous
  Country: US (occurrence: US)
  Receive Date: 20150819
  Receipt Date: 20151016
  Transmission Date: 20160304
  Serious: No
  Sender: FDA-Public Use
  Company Number: US-009507513-1508USA007854

PATIENT
  Sex: Male

DRUGS (1)
  1. DULERA [Suspect]
     Active Substance: FORMOTEROL FUMARATE DIHYDRATE\MOMETASONE FUROATE
     Dosage: 100MCG/5 MCG
     Route: 055

REACTIONS (5)
  - No adverse event [Unknown]
  - Device malfunction [None]
  - Drug dose omission [Unknown]
  - Incorrect dose administered by device [None]
  - Product quality issue [Unknown]
